FAERS Safety Report 13911836 (Version 1)
Quarter: 2017Q3

REPORT INFORMATION
  Report Type: Spontaneous
  Country: US (occurrence: US)
  Receive Date: 20170827
  Receipt Date: 20170827
  Transmission Date: 20171127
  Serious: Yes (Other)
  Sender: FDA-Public Use
  Company Number: None

PATIENT
  Age: 58 Year
  Sex: Female
  Weight: 76.5 kg

DRUGS (3)
  1. SYMBACIRT [Concomitant]
  2. KEVOXITHYRIBE [Concomitant]
  3. SIMPLY SLEEP [Suspect]
     Active Substance: DIPHENHYDRAMINE HYDROCHLORIDE
     Indication: INSOMNIA
     Dosage: ?          QUANTITY:1 TABLET(S);?
     Route: 048
     Dates: start: 20170529, end: 20170824

REACTIONS (3)
  - Feeling abnormal [None]
  - Anger [None]
  - Affective disorder [None]

NARRATIVE: CASE EVENT DATE: 20170811
